FAERS Safety Report 6019427-X (Version None)
Quarter: 2008Q4

REPORT INFORMATION
  Report Type: 
  Country: None (occurrence: None)
  Receive Date: 20081224
  Receipt Date: 20081214
  Transmission Date: 20090506
  Serious: Yes (Other)
  Sender: FDA-Public Use
  Company Number: US-PFIZER INC-2008158587

PATIENT

DRUGS (1)
  1. ZITHROMAX [Suspect]
     Route: 048
     Dates: start: 20081208, end: 20081210

REACTIONS (4)
  - HALLUCINATION [None]
  - HYPOAESTHESIA [None]
  - TOOTH ABSCESS [None]
  - UNEVALUABLE EVENT [None]
